FAERS Safety Report 9586163 (Version 1)
Quarter: 2013Q4

REPORT INFORMATION
  Report Type: Spontaneous
  Country: US (occurrence: None)
  Receive Date: 20131002
  Receipt Date: 20131002
  Transmission Date: 20140711
  Serious: Yes (Hospitalization)
  Sender: FDA-Public Use
  Company Number: None

PATIENT
  Age: 55 Year
  Sex: Male

DRUGS (1)
  1. NEXAVAR [Suspect]
     Indication: THYROID CANCER
     Route: 048
     Dates: start: 20130906, end: 20130916

REACTIONS (4)
  - Palmar-plantar erythrodysaesthesia syndrome [None]
  - Rash generalised [None]
  - Gait disturbance [None]
  - Gastrointestinal inflammation [None]
